FAERS Safety Report 6225386-7 (Version None)
Quarter: 2009Q2

REPORT INFORMATION
  Report Type: 
  Country: None (occurrence: None)
  Receive Date: 20090612
  Receipt Date: 20090417
  Transmission Date: 20091009
  Serious: No
  Sender: FDA-Public Use
  Company Number: PR-ABBOTT-09P-163-0569007-00

PATIENT
  Sex: Male
  Weight: 113.5 kg

DRUGS (3)
  1. HUMIRA [Suspect]
     Indication: PSORIASIS
     Route: 058
     Dates: start: 20090402, end: 20090402
  2. HUMIRA [Suspect]
     Route: 058
     Dates: start: 20090409
  3. ATACANG [Concomitant]
     Indication: HYPERTENSION
     Dosage: 16/12.5MG - 1 TABLET DAILY
     Route: 048

REACTIONS (5)
  - BONE PAIN [None]
  - DRY SKIN [None]
  - PRURITUS [None]
  - PSORIASIS [None]
  - SKIN ULCER [None]
